FAERS Safety Report 25779199 (Version 1)
Quarter: 2025Q3

REPORT INFORMATION
  Report Type: Spontaneous
  Country: US (occurrence: None)
  Receive Date: 20250909
  Receipt Date: 20250909
  Transmission Date: 20251021
  Serious: Yes (Other)
  Sender: FDA-CTU
  Company Number: None

PATIENT
  Age: 63 Year
  Sex: Female
  Weight: 83.25 kg

DRUGS (4)
  1. ZEPBOUND [Suspect]
     Active Substance: TIRZEPATIDE
     Indication: Weight control
     Route: 030
     Dates: start: 20250903, end: 20250904
  2. Crestor losartan Celexa [Concomitant]
  3. LOSARTAN [Concomitant]
     Active Substance: LOSARTAN
  4. CELEXA [Concomitant]
     Active Substance: CITALOPRAM HYDROBROMIDE

REACTIONS (4)
  - Asthenia [None]
  - Hyperhidrosis [None]
  - Dizziness [None]
  - Vomiting [None]

NARRATIVE: CASE EVENT DATE: 20250903
